FAERS Safety Report 5705712-5 (Version None)
Quarter: 2008Q2

REPORT INFORMATION
  Report Type: 
  Country: None (occurrence: None)
  Receive Date: 20080415
  Receipt Date: 20080409
  Transmission Date: 20081010
  Serious: Yes (Hospitalization)
  Sender: FDA-Public Use
  Company Number: A0721882A

PATIENT
  Sex: Female

DRUGS (3)
  1. SEREVENT [Suspect]
     Indication: ASTHMA
     Dosage: 50MCG TWICE PER DAY
     Route: 055
  2. NEBULISER (UNKNOWN MEDICATIONS) [Concomitant]
  3. PULMICORT [Concomitant]

REACTIONS (3)
  - DRUG INEFFECTIVE [None]
  - POSTNASAL DRIP [None]
  - PYREXIA [None]
